FAERS Safety Report 15685069 (Version 2)
Quarter: 2019Q1

REPORT INFORMATION
  Report Type: Spontaneous
  Country: DE (occurrence: DE)
  Receive Date: 20181204
  Receipt Date: 20190213
  Transmission Date: 20190417
  Serious: Yes (Other)
  Sender: FDA-Public Use
  Company Number: DE-BAYER-2018-218571

PATIENT
  Age: 34 Year
  Sex: Female
  Weight: 124 kg

DRUGS (4)
  1. MIRENA [Suspect]
     Active Substance: LEVONORGESTREL
     Indication: CONTRACEPTION
  2. MIRENA [Suspect]
     Active Substance: LEVONORGESTREL
     Indication: MENORRHAGIA
     Dosage: 20 MCG/24HR, CONT
     Route: 015
     Dates: start: 20180723
  3. MICROLUT [Suspect]
     Active Substance: LEVONORGESTREL
     Indication: METRORRHAGIA
     Dosage: 1 DF, QD
     Route: 048
     Dates: start: 20180903, end: 20180913
  4. MIRENA [Suspect]
     Active Substance: LEVONORGESTREL
     Indication: DYSMENORRHOEA

REACTIONS (4)
  - Product use in unapproved indication [None]
  - Metrorrhagia [None]
  - Thrombophlebitis superficial [Recovered/Resolved]
  - Off label use [None]

NARRATIVE: CASE EVENT DATE: 20181109
